FAERS Safety Report 6177206-7 (Version None)
Quarter: 2009Q2

REPORT INFORMATION
  Report Type: 
  Country: None (occurrence: None)
  Receive Date: 20090430
  Receipt Date: 20090430
  Transmission Date: 20091009
  Serious: Yes (Hospitalization, Disabling, Other)
  Sender: FDA-Public Use
  Company Number: None

PATIENT
  Sex: Male
  Weight: 90.7194 kg

DRUGS (1)
  1. DIGOXIN [Suspect]
     Indication: ATRIAL FIBRILLATION
     Dosage: 0.25MG 1 TABLET DAILY PO
     Route: 048
     Dates: start: 20080326, end: 20090426

REACTIONS (2)
  - ATRIAL FIBRILLATION [None]
  - LOWER GASTROINTESTINAL HAEMORRHAGE [None]
